FAERS Safety Report 21832972 (Version 3)
Quarter: 2023Q2

REPORT INFORMATION
  Report Type: Spontaneous
  Country: US (occurrence: US)
  Receive Date: 20230106
  Receipt Date: 20230425
  Transmission Date: 20230722
  Serious: No
  Sender: FDA-Public Use
  Company Number: US-ALLERGAN-2239668US

PATIENT
  Sex: Female

DRUGS (1)
  1. QULIPTA [Suspect]
     Active Substance: ATOGEPANT
     Indication: Product used for unknown indication
     Dosage: 60 MG

REACTIONS (6)
  - Anxiety [Unknown]
  - Sleep disorder [Unknown]
  - Decreased appetite [Unknown]
  - Headache [Unknown]
  - Constipation [Unknown]
  - Drug ineffective [Unknown]
